FAERS Safety Report 8242830-4 (Version None)
Quarter: 2012Q1

REPORT INFORMATION
  Report Type: 
  Country: None (occurrence: None)
  Receive Date: 20120329
  Receipt Date: 20120326
  Transmission Date: 20120608
  Serious: Yes (Other)
  Sender: FDA-Public Use
  Company Number: US-BAYER-2012-030218

PATIENT
  Age: 39 Year
  Sex: Female
  Weight: 72.562 kg

DRUGS (3)
  1. SINGULAIR [Concomitant]
  2. YAZ [Suspect]
  3. EFFEXOR [Concomitant]

REACTIONS (2)
  - DEEP VEIN THROMBOSIS [None]
  - CHOLECYSTITIS [None]
